FAERS Safety Report 5935471-2 (Version None)
Quarter: 2008Q4

REPORT INFORMATION
  Report Type: 
  Country: None (occurrence: None)
  Receive Date: 20081030
  Receipt Date: 20081001
  Transmission Date: 20090506
  Serious: No
  Sender: FDA-Public Use
  Company Number: US-BAYER-200813955BCC

PATIENT
  Age: 82 Year
  Sex: Female
  Weight: 82 kg

DRUGS (6)
  1. ALEVE (CAPLET) [Suspect]
     Indication: BACK PAIN
     Dosage: TOTAL DAILY DOSE: 660 MG  UNIT DOSE: 220 MG
     Route: 048
     Dates: start: 20080930
  2. ALEVE (CAPLET) [Suspect]
     Dosage: TOTAL DAILY DOSE: 220 MG  UNIT DOSE: 220 MG
     Route: 048
     Dates: start: 20081001
  3. LISINOPRIL [Concomitant]
  4. ALDACTONE [Concomitant]
  5. SIMVASTATIN [Concomitant]
  6. GLIPIZIDE [Concomitant]

REACTIONS (1)
  - ARTHRALGIA [None]
